FAERS Safety Report 10973686 (Version 1)
Quarter: 2015Q1

REPORT INFORMATION
  Report Type: Spontaneous
  Country: US (occurrence: None)
  Receive Date: 20150226
  Receipt Date: 20150226
  Transmission Date: 20150721
  Serious: No
  Sender: FDA-Public Use
  Company Number: TPA2009A04015

PATIENT
  Age: 68 Year
  Sex: Male

DRUGS (2)
  1. UNKNOWN MEDICATION (ALL OTHER THERAPEUTIC PRODUCTS) [Concomitant]
     Active Substance: UNSPECIFIED INGREDIENT
  2. ULORIC [Suspect]
     Active Substance: FEBUXOSTAT
     Indication: PRODUCT USED FOR UNKNOWN INDICATION
     Route: 048
     Dates: start: 2009, end: 2009

REACTIONS (1)
  - Hypertension [None]

NARRATIVE: CASE EVENT DATE: 2009
